FAERS Safety Report 6843524-X (Version None)
Quarter: 2010Q2

REPORT INFORMATION
  Report Type: 
  Country: None (occurrence: None)
  Receive Date: 20100629
  Receipt Date: 20100517
  Transmission Date: 20101027
  Serious: No
  Sender: FDA-Public Use
  Company Number: US-WYE-H15177810

PATIENT
  Age: 21 Year
  Sex: Female

DRUGS (5)
  1. PRISTIQ [Suspect]
     Dosage: 50 MG 1X PER 1 DAY
     Dates: start: 20100504
  2. CELEBREX [Concomitant]
  3. CEPHALEXIN [Concomitant]
  4. VICODIN [Concomitant]
  5. LEXAPRO [Concomitant]

REACTIONS (1)
  - HYPERSOMNIA [None]
